FAERS Safety Report 19780129 (Version 6)
Quarter: 2022Q1

REPORT INFORMATION
  Report Type: Spontaneous
  Country: FR (occurrence: FR)
  Receive Date: 20210902
  Receipt Date: 20220307
  Transmission Date: 20220423
  Serious: Yes (Other)
  Sender: FDA-Public Use
  Company Number: FR-BAUSCH-BL-2021-023052

PATIENT
  Age: 80 Year
  Sex: Female

DRUGS (11)
  1. AMLODIPINE BESYLATE [Suspect]
     Active Substance: AMLODIPINE BESYLATE
     Indication: Raynaud^s phenomenon
     Dosage: 5 MG, 1X/DAY
     Dates: start: 20210112, end: 202101
  2. NICARDIPINE HYDROCHLORIDE [Suspect]
     Active Substance: NICARDIPINE HYDROCHLORIDE
     Indication: Raynaud^s phenomenon
     Dosage: 20 MG EVERY 12 HOURS
     Dates: start: 20210305, end: 202103
  3. DIETARY SUPPLEMENT\MINERALS\VITAMINS [Suspect]
     Active Substance: DIETARY SUPPLEMENT\MINERALS\VITAMINS
     Dosage: UNK
     Route: 065
     Dates: start: 20210611, end: 20210620
  4. DIETARY SUPPLEMENT\MINERALS\VITAMINS [Suspect]
     Active Substance: DIETARY SUPPLEMENT\MINERALS\VITAMINS
     Dosage: UNK
     Route: 065
     Dates: start: 20210714, end: 20210828
  5. LATANOPROST [Suspect]
     Active Substance: LATANOPROST
     Indication: Glaucoma
     Dosage: 1 DROP IN THE EVENING IN BOTH EYES
  6. MINERALS\OMEGA-3 FATTY ACIDS\VITAMINS [Suspect]
     Active Substance: MINERALS\OMEGA-3 FATTY ACIDS\VITAMINS
     Indication: Eye disorder
     Dosage: UNK
     Route: 048
     Dates: start: 20210620, end: 20210624
  7. LEVOCABASTINE HYDROCHLORIDE [Suspect]
     Active Substance: LEVOCABASTINE HYDROCHLORIDE
     Indication: Conjunctivitis allergic
     Dosage: 1 DROP IN THE MORNING AND EVENING IN BOTH EYES
     Route: 047
     Dates: start: 20150516
  8. REFRESH CLASSIC LUBRICANT EYE DROPS [Concomitant]
     Indication: Dry eye
     Dosage: 2 DROP, 8X/DAY
  9. DULCILARMES [Concomitant]
     Indication: Dry eye
     Dosage: 2 DROPS EVERY 8 HOURS
  10. LEVOTHYROXINE [Concomitant]
     Active Substance: LEVOTHYROXINE
     Indication: Thyroid disorder
     Dosage: 25 UG, 1X/DAY
     Dates: start: 20190525
  11. LEVOTHYROXINE [Concomitant]
     Active Substance: LEVOTHYROXINE
     Dosage: 1.5 TABLET, DAILY
     Dates: start: 20201014

REACTIONS (15)
  - Sjogren^s syndrome [Not Recovered/Not Resolved]
  - Condition aggravated [Recovered/Resolved]
  - Glossitis [Recovered/Resolved]
  - Herpes virus infection [Recovered/Resolved]
  - Facial discomfort [Recovered/Resolved]
  - Vertigo [Recovered/Resolved]
  - Dyspepsia [Recovered/Resolved]
  - Headache [Recovered/Resolved]
  - Blood pressure decreased [Recovered/Resolved]
  - Tongue ulceration [Recovered/Resolved]
  - Vision blurred [Recovered/Resolved]
  - Asthenopia [Not Recovered/Not Resolved]
  - Pruritus [Recovered/Resolved]
  - Drug ineffective for unapproved indication [Unknown]
  - Off label use [Unknown]

NARRATIVE: CASE EVENT DATE: 20210101
